FAERS Safety Report 20198000 (Version 1)
Quarter: 2021Q4

REPORT INFORMATION
  Report Type: Spontaneous
  Country: US (occurrence: US)
  Receive Date: 20211217
  Receipt Date: 20211217
  Transmission Date: 20220304
  Serious: No
  Sender: FDA-Public Use
  Company Number: US-ALLERGAN-2112373US

PATIENT
  Age: 70 Year
  Sex: Male
  Weight: 127 kg

DRUGS (3)
  1. PREDNISOLONE ACETATE [Suspect]
     Active Substance: PREDNISOLONE ACETATE
     Indication: Product used for unknown indication
     Dosage: UNK
     Route: 047
     Dates: start: 202103
  2. XANAX [Concomitant]
     Active Substance: ALPRAZOLAM
     Indication: Anxiety
     Dosage: 0.25 MG, QHS
     Dates: start: 202101
  3. XANAX [Concomitant]
     Active Substance: ALPRAZOLAM
     Indication: Sleep disorder

REACTIONS (1)
  - Blood pressure increased [Unknown]

NARRATIVE: CASE EVENT DATE: 20210301
